FAERS Safety Report 7422690-1 (Version None)
Quarter: 2011Q2

REPORT INFORMATION
  Report Type: 
  Country: None (occurrence: None)
  Receive Date: 20110419
  Receipt Date: 20110408
  Transmission Date: 20111010
  Serious: Yes (Hospitalization, Other)
  Sender: FDA-Public Use
  Company Number: GB-ELI_LILLY_AND_COMPANY-GB201104002604

PATIENT
  Age: 14 Year
  Sex: Male

DRUGS (2)
  1. STRATTERA [Suspect]
     Dosage: UNK
     Route: 065
  2. SERTRALINE [Concomitant]
     Dosage: UNK
     Route: 065

REACTIONS (3)
  - BIPOLAR DISORDER [None]
  - INTENTIONAL DRUG MISUSE [None]
  - HOSPITALISATION [None]
